FAERS Safety Report 8335833-2 (Version None)
Quarter: 2012Q2

REPORT INFORMATION
  Report Type: 
  Country: None (occurrence: None)
  Receive Date: 20120502
  Receipt Date: 20120502
  Transmission Date: 20120825
  Serious: Yes (Other)
  Sender: FDA-Public Use
  Company Number: None

PATIENT
  Sex: Male
  Weight: 21.8 kg

DRUGS (3)
  1. GAMMAGARD LIQUID [Suspect]
     Indication: IMMUNODEFICIENCY COMMON VARIABLE
     Dosage: 18 GRAMS WEEKLY SUBCUTANEOUSLY
     Route: 058
     Dates: start: 20120429
  2. IPRATROPIUM INHALER [Concomitant]
  3. PROVENTIL GENTLEHALER [Concomitant]

REACTIONS (4)
  - INFUSION SITE PRURITUS [None]
  - INFUSION SITE ERYTHEMA [None]
  - INFUSION SITE URTICARIA [None]
  - INFUSION SITE RASH [None]
